FAERS Safety Report 9526964 (Version 1)
Quarter: 2013Q3

REPORT INFORMATION
  Report Type: Spontaneous
  Country: US (occurrence: US)
  Receive Date: 20130916
  Receipt Date: 20130916
  Transmission Date: 20140515
  Serious: Yes (Life-Threatening)
  Sender: FDA-Public Use
  Company Number: CHPA2013US014238

PATIENT
  Sex: Female

DRUGS (1)
  1. BUCKLEY^S COUGH MIXTURE [Suspect]
     Dosage: UNK UNK, QD
     Route: 048
     Dates: start: 2003

REACTIONS (2)
  - Feeling abnormal [Unknown]
  - Incorrect drug administration duration [Unknown]
